FAERS Safety Report 6972021-6 (Version None)
Quarter: 2010Q3

REPORT INFORMATION
  Report Type: 
  Country: None (occurrence: None)
  Receive Date: 20100909
  Receipt Date: 20100412
  Transmission Date: 20110219
  Serious: Yes (Death)
  Sender: FDA-Public Use
  Company Number: US-ASTRAZENECA-2009UW02641

PATIENT
  Age: 47 Year
  Sex: Female

DRUGS (10)
  1. SEROQUEL [Suspect]
     Route: 048
     Dates: start: 20020215
  2. CELEXA [Concomitant]
     Dates: start: 20011207
  3. LITHIUM [Concomitant]
     Dates: start: 20011231
  4. ZYPREXA [Concomitant]
     Dates: start: 20011231
  5. GLUCOTROL [Concomitant]
     Dates: start: 20020102
  6. DEPAKOTE [Concomitant]
     Dates: start: 20020215
  7. AVELOX [Concomitant]
     Dates: start: 20020312
  8. GLIPIZIDE [Concomitant]
     Dates: start: 20020409
  9. NEURONTIN [Concomitant]
     Dates: start: 20020409
  10. TRAMADOL HCL [Concomitant]
     Dates: start: 20020710

REACTIONS (3)
  - CARDIAC ARREST [None]
  - DIABETES MELLITUS [None]
  - MYOCARDIAL ISCHAEMIA [None]
